FAERS Safety Report 5282174-6 (Version None)
Quarter: 2007Q1

REPORT INFORMATION
  Report Type: 
  Country: None (occurrence: None)
  Receive Date: 20070330
  Receipt Date: 20070320
  Transmission Date: 20070707
  Serious: Yes (Disabling, Other)
  Sender: FDA-Public Use
  Company Number: US-PFIZER INC-2007009618

PATIENT
  Sex: Female
  Weight: 55.3 kg

DRUGS (22)
  1. LYRICA [Suspect]
     Indication: NEURALGIA
     Dates: start: 20060915, end: 20060919
  2. LYRICA [Suspect]
  3. NEURONTIN [Suspect]
     Indication: NEURALGIA
     Route: 048
  4. CLONIDINE [Concomitant]
     Route: 048
  5. GABAPENTIN [Concomitant]
  6. STOOL SOFTENER [Concomitant]
  7. VITAMIN B-12 [Concomitant]
     Route: 048
  8. ACETYLSALICYLIC ACID SRT [Concomitant]
     Route: 048
  9. BENICAR [Concomitant]
  10. INDAPAMIDE [Concomitant]
     Route: 048
  11. ACTONEL [Concomitant]
     Route: 048
  12. BENADRYL [Concomitant]
     Route: 048
  13. CHLORPHENIRAMINE MALEATE [Concomitant]
     Route: 048
  14. COMBIVENT [Concomitant]
     Route: 048
  15. AMBIEN [Concomitant]
     Route: 048
  16. LASIX [Concomitant]
     Route: 048
  17. ASTELIN [Concomitant]
     Route: 045
  18. LOMOTIL [Concomitant]
     Route: 048
  19. RANITIDINE [Concomitant]
     Route: 048
  20. PREMARIN [Concomitant]
     Route: 048
  21. ADVAIR DISKUS 100/50 [Concomitant]
     Route: 048
  22. CALCIUM WITH VITAMIN D [Concomitant]
     Route: 048

REACTIONS (19)
  - ADVERSE EVENT [None]
  - ALLERGY TO CHEMICALS [None]
  - ALOPECIA [None]
  - ANOREXIA [None]
  - ASTHENIA [None]
  - COLON CANCER [None]
  - DISABILITY [None]
  - DRY SKIN [None]
  - DYSPHONIA [None]
  - ERYTHEMA [None]
  - HYPERHIDROSIS [None]
  - JOINT STIFFNESS [None]
  - MUSCLE SPASMS [None]
  - MUSCULOSKELETAL STIFFNESS [None]
  - NON-SMALL CELL LUNG CANCER [None]
  - SKIN DISORDER [None]
  - SKIN WRINKLING [None]
  - SWOLLEN TONGUE [None]
  - WEIGHT DECREASED [None]
